FAERS Safety Report 9958576 (Version 1)
Quarter: 2014Q1

REPORT INFORMATION
  Report Type: Report from Study
  Country: US (occurrence: US)
  Receive Date: 20140305
  Receipt Date: 20140305
  Transmission Date: 20141002
  Serious: Yes (Other)
  Sender: FDA-Public Use
  Company Number: US-ROCHE-1339294

PATIENT
  Age: 59 Year
  Sex: Male

DRUGS (22)
  1. LUCENTIS [Suspect]
     Indication: DIABETIC RETINOPATHY
     Dosage: 0.5 MG OU AT 4 TO 6 WEEK INTERVALS
     Route: 050
     Dates: start: 20100614
  2. LUCENTIS [Suspect]
     Indication: DIABETIC RETINOPATHY
  3. LUCENTIS [Suspect]
     Indication: DIABETIC RETINOPATHY
  4. LUCENTIS [Suspect]
     Indication: DIABETIC RETINAL OEDEMA
  5. LUCENTIS [Suspect]
     Indication: DIABETIC RETINOPATHY
  6. LUCENTIS [Suspect]
     Indication: TYPE 2 DIABETES MELLITUS
  7. AVASTIN [Suspect]
     Indication: DIABETIC RETINOPATHY
     Dosage: OS
     Route: 050
     Dates: start: 20120216
  8. AVASTIN [Suspect]
     Indication: DIABETIC RETINOPATHY
  9. AVASTIN [Suspect]
     Indication: DIABETIC RETINOPATHY
  10. AVASTIN [Suspect]
     Indication: DIABETIC RETINAL OEDEMA
  11. AVASTIN [Suspect]
     Indication: TYPE 2 DIABETES MELLITUS
  12. DIOVAN [Concomitant]
     Route: 048
  13. GLUCOVANCE [Concomitant]
     Route: 048
  14. HUMULIN 70/30 [Concomitant]
     Dosage: 35 UNITS QHS
     Route: 065
  15. OMEGA 3 FATTY ACIDS [Concomitant]
  16. MOEXIPRIL HYDROCHLORIDE [Concomitant]
     Dosage: QD
     Route: 048
  17. COMBIGAN [Concomitant]
     Dosage: GTT BID OU
     Route: 047
  18. PILOCARPINE [Concomitant]
     Dosage: 2% GTT TID OD
     Route: 047
  19. TRAVATAN [Concomitant]
     Dosage: GTT PM OU
     Route: 047
  20. PLAVIX [Concomitant]
     Route: 048
  21. CRESTOR [Concomitant]
     Route: 048
  22. VIGAMOX [Concomitant]
     Dosage: QID OD
     Route: 065

REACTIONS (12)
  - Retinal haemorrhage [Unknown]
  - Macular oedema [Unknown]
  - Cystoid macular oedema [Unknown]
  - Vision blurred [Unknown]
  - Visual impairment [Unknown]
  - Night blindness [Unknown]
  - Visual acuity reduced [Unknown]
  - Drug ineffective [Unknown]
  - Visual impairment [Unknown]
  - Retinal aneurysm [Unknown]
  - Maculopathy [Unknown]
  - Vision blurred [Unknown]
